FAERS Safety Report 6966416-4 (Version None)
Quarter: 2010Q3

REPORT INFORMATION
  Report Type: 
  Country: None (occurrence: None)
  Receive Date: 20100904
  Receipt Date: 20100816
  Transmission Date: 20110219
  Serious: Yes (Hospitalization, Other)
  Sender: FDA-Public Use
  Company Number: PHHO2010US10371

PATIENT
  Sex: Male
  Weight: 97.052 kg

DRUGS (10)
  1. AFINITOR [Suspect]
     Indication: METASTATIC MALIGNANT MELANOMA
     Dosage: 5 MG, UNK
     Route: 048
     Dates: start: 20100607, end: 20100706
  2. PACLITAXEL [Suspect]
     Indication: METASTATIC MALIGNANT MELANOMA
     Dosage: 364 MG, UNK
     Route: 042
     Dates: start: 20100607
  3. CARBOPLATIN [Suspect]
     Indication: METASTATIC MALIGNANT MELANOMA
     Dosage: 522 MG, UNK
     Route: 042
     Dates: start: 20100607
  4. LISINOPRIL [Concomitant]
     Indication: HYPERTENSION
  5. LIPITOR [Concomitant]
     Indication: HYPERLIPIDAEMIA
  6. COREG [Concomitant]
     Indication: HYPERTENSION
  7. REGULAR INSULIN [Concomitant]
     Indication: DIABETES MELLITUS
  8. MIRALAX [Concomitant]
     Indication: CONSTIPATION
  9. MULTI-VIT [Concomitant]
  10. ATENOLOL [Concomitant]
     Indication: HYPERTENSION

REACTIONS (12)
  - CARDIOVERSION [None]
  - CATHETER SITE INFECTION [None]
  - CENTRAL VENOUS CATHETER REMOVAL [None]
  - ENTEROBACTER INFECTION [None]
  - HEART RATE INCREASED [None]
  - HYPOTENSION [None]
  - MALAISE [None]
  - MALIGNANT NEOPLASM PROGRESSION [None]
  - MYOCARDIAL INFARCTION [None]
  - PLEURAL EFFUSION [None]
  - SEPTIC SHOCK [None]
  - VENTRICULAR TACHYCARDIA [None]
